FAERS Safety Report 25303377 (Version 3)
Quarter: 2025Q2

REPORT INFORMATION
  Report Type: Report from Study
  Country: US (occurrence: US)
  Receive Date: 20250512
  Receipt Date: 20250603
  Transmission Date: 20250716
  Serious: No
  Sender: MALLINCKRODT
  Company Number: US-MALLINCKRODT-MNK202502703

PATIENT
  Age: 65 Year
  Sex: Female
  Weight: 110 kg

DRUGS (1)
  1. CORTICOTROPIN [Suspect]
     Active Substance: CORTICOTROPIN
     Indication: Rheumatoid arthritis
     Dates: start: 202503

REACTIONS (5)
  - Memory impairment [Unknown]
  - Thinking abnormal [Unknown]
  - Dyspnoea [Unknown]
  - Abdominal distension [Unknown]
  - Irritability [Unknown]

NARRATIVE: CASE EVENT DATE: 20250101
